FAERS Safety Report 4691788-3 (Version None)
Quarter: 2005Q2

REPORT INFORMATION
  Report Type: 
  Country: None (occurrence: None)
  Receive Date: 20050615
  Receipt Date: 20050615
  Transmission Date: 20051028
  Serious: Yes (Other)
  Sender: FDA-Public Use
  Company Number: None

PATIENT
  Sex: Male
  Weight: 80.2 kg

DRUGS (4)
  1. CLINDAMYCIN [Suspect]
     Indication: CHRONIC LYMPHOCYTIC LEUKAEMIA
     Dosage: 450 MG 4X DAILY FOR 16 DAYS
     Dates: start: 20050501
  2. PRIMAQUINE [Suspect]
     Dosage: 26.3MG DAILY FOR 16 DAYS
  3. LEVAQUIN [Suspect]
     Dosage: 500 MG DAILY FOR 16 DAYS
  4. PREDNISONE TAB [Suspect]
     Dosage: 60 MG FOR 7 DAYS

REACTIONS (5)
  - CONDITION AGGRAVATED [None]
  - CRYPTOGENIC ORGANIZING PNEUMONIA [None]
  - LUNG INFILTRATION [None]
  - LUNG NEOPLASM [None]
  - SPLENOMEGALY [None]
